FAERS Safety Report 10312160 (Version 3)
Quarter: 2015Q1

REPORT INFORMATION
  Report Type: Spontaneous
  Country: US (occurrence: US)
  Receive Date: 20140718
  Receipt Date: 20150202
  Transmission Date: 20150720
  Serious: Yes (Death, Hospitalization, Other)
  Sender: FDA-Public Use
  Company Number: US-GILEAD-2014-0108944

PATIENT
  Age: 69 Year
  Sex: Male

DRUGS (2)
  1. LETAIRIS [Suspect]
     Active Substance: AMBRISENTAN
     Indication: PULMONARY HYPERTENSION
     Dosage: 5 MG, QD
     Route: 065
     Dates: start: 20140609, end: 20140706
  2. LETAIRIS [Suspect]
     Active Substance: AMBRISENTAN
     Indication: PLEURAL EFFUSION

REACTIONS (2)
  - Respiratory distress [Unknown]
  - Acute lung injury [Fatal]
